FAERS Safety Report 21372879 (Version 1)
Quarter: 2022Q3

REPORT INFORMATION
  Report Type: Report from Study
  Country: US (occurrence: US)
  Receive Date: 20220924
  Receipt Date: 20220924
  Transmission Date: 20221027
  Serious: Yes (Hospitalization, Other)
  Sender: FDA-Public Use
  Company Number: US-ABBVIE-4128516

PATIENT
  Age: 75 Year
  Sex: Female
  Weight: 68.038 kg

DRUGS (17)
  1. HUMIRA [Suspect]
     Active Substance: ADALIMUMAB
     Indication: Psoriatic arthropathy
     Route: 058
     Dates: start: 2021, end: 202204
  2. HUMIRA [Suspect]
     Active Substance: ADALIMUMAB
     Route: 058
     Dates: start: 202205, end: 202208
  3. IRON [Concomitant]
     Active Substance: IRON
     Indication: Anaemia
  4. ELIQUIS [Concomitant]
     Active Substance: APIXABAN
     Indication: Thrombosis
     Route: 048
     Dates: start: 20210826
  5. ELIQUIS [Concomitant]
     Active Substance: APIXABAN
     Indication: Thrombosis
     Route: 048
     Dates: start: 20211208, end: 20220825
  6. VITAMIN D3 [Concomitant]
     Active Substance: CHOLECALCIFEROL
     Indication: Supplementation therapy
  7. RESTASIS [Concomitant]
     Active Substance: CYCLOSPORINE
     Indication: Dry eye
  8. TRAMADOL [Concomitant]
     Active Substance: TRAMADOL
     Indication: Pain
  9. SULFASALAZINE [Concomitant]
     Active Substance: SULFASALAZINE
     Indication: Arthritis
  10. MAGNESIUM [Concomitant]
     Active Substance: MAGNESIUM
     Indication: Menopause
  11. CALCIUM CITRATE [Concomitant]
     Active Substance: CALCIUM CITRATE
     Indication: Product used for unknown indication
  12. BIOTIN [Concomitant]
     Active Substance: BIOTIN
     Indication: Nail psoriasis
  13. Moderna [Concomitant]
     Indication: COVID-19 immunisation
     Dosage: THIRD DOSE
     Route: 030
     Dates: start: 20220105, end: 20220105
  14. Moderna [Concomitant]
     Indication: COVID-19 immunisation
     Dosage: FIRST DOSE
     Route: 030
     Dates: start: 20210320, end: 20210320
  15. Moderna [Concomitant]
     Indication: COVID-19 immunisation
     Dosage: SECOND DOSE
     Route: 030
     Dates: start: 20210424, end: 20210424
  16. magnesium bolus [Concomitant]
     Indication: Anaemia
  17. FOLIC ACID [Concomitant]
     Active Substance: FOLIC ACID
     Indication: Anaemia

REACTIONS (8)
  - Pulmonary embolism [Recovered/Resolved]
  - Anaemia [Not Recovered/Not Resolved]
  - Hip arthroplasty [Unknown]
  - Dyspnoea [Recovered/Resolved]
  - Haemorrhage urinary tract [Recovered/Resolved]
  - Thrombosis [Recovered/Resolved]
  - Arthralgia [Recovering/Resolving]
  - Procedural haemorrhage [Recovered/Resolved]

NARRATIVE: CASE EVENT DATE: 20211206
